FAERS Safety Report 8048226-2 (Version None)
Quarter: 2012Q1

REPORT INFORMATION
  Report Type: 
  Country: None (occurrence: None)
  Receive Date: 20120113
  Receipt Date: 20120113
  Transmission Date: 20120608
  Serious: No
  Sender: FDA-Public Use
  Company Number: None

PATIENT
  Age: 58 Year
  Sex: Male

DRUGS (4)
  1. AMLODIPINE [Suspect]
     Dates: start: 20090814, end: 20100423
  2. TRIAMTERENE AND HYDROCHLOROTHIAZIDE [Concomitant]
  3. CLINDAMYCIN [Concomitant]
  4. AZTHROMYCIN [Concomitant]

REACTIONS (4)
  - BLOOD ALKALINE PHOSPHATASE INCREASED [None]
  - ASPARTATE AMINOTRANSFERASE INCREASED [None]
  - ALANINE AMINOTRANSFERASE INCREASED [None]
  - LIVER INJURY [None]
